FAERS Safety Report 8130346-5 (Version None)
Quarter: 2012Q1

REPORT INFORMATION
  Report Type: 
  Country: None (occurrence: None)
  Receive Date: 20120210
  Receipt Date: 20120206
  Transmission Date: 20120608
  Serious: Yes (Death, Other)
  Sender: FDA-Public Use
  Company Number: PHHY2012MX010952

PATIENT
  Sex: Female

DRUGS (3)
  1. MYFORTIC [Suspect]
     Indication: RENAL FAILURE
  2. MYFORTIC [Suspect]
     Indication: SYSTEMIC LUPUS ERYTHEMATOSUS
     Dosage: DOSE OF 1 TABLET (180 MG) PER DAY
     Route: 048
     Dates: end: 20111226
  3. CALCORT [Concomitant]
     Indication: ARTHRITIS
     Dosage: 1 TABLET PER DAY

REACTIONS (5)
  - SEPTIC SHOCK [None]
  - BLOOD DISORDER [None]
  - HYPERTENSION [None]
  - FLUID RETENTION [None]
  - DYSPNOEA [None]
